FAERS Safety Report 4464882-X (Version None)
Quarter: 2004Q4

REPORT INFORMATION
  Report Type: 
  Country: None (occurrence: None)
  Receive Date: 20041004
  Receipt Date: 20040106
  Transmission Date: 20050328
  Serious: Yes (Hospitalization)
  Sender: FDA-Public Use
  Company Number: 355456

PATIENT
  Age: 77 Year
  Sex: Female

DRUGS (6)
  1. COREG [Suspect]
     Indication: ILL-DEFINED DISORDER
     Dosage: 3.125MG VARIABLE DOSE
     Route: 048
     Dates: start: 20040105
  2. FLUCONAZOLE [Suspect]
     Indication: ILL-DEFINED DISORDER
     Dosage: 200MG PER DAY
     Route: 048
     Dates: start: 20040102, end: 20040105
  3. VANCOMYCIN [Concomitant]
  4. TEQUIN [Concomitant]
  5. PREVACID [Concomitant]
  6. FLAGYL [Concomitant]

REACTIONS (1)
  - THROMBOCYTOPENIA [None]
